FAERS Safety Report 8387406-3 (Version None)
Quarter: 2012Q2

REPORT INFORMATION
  Report Type: 
  Country: None (occurrence: None)
  Receive Date: 20120525
  Receipt Date: 20120419
  Transmission Date: 20120825
  Serious: Yes (Other)
  Sender: FDA-Public Use
  Company Number: US-ROCHE-GNE312438

PATIENT
  Sex: Female

DRUGS (2)
  1. RANIBIZUMAB [Suspect]
     Indication: AGE-RELATED MACULAR DEGENERATION
     Route: 050
     Dates: start: 20060101, end: 20111228
  2. AVASTIN [Suspect]
     Indication: PRODUCT USED FOR UNKNOWN INDICATION
     Route: 050
     Dates: start: 20120101

REACTIONS (15)
  - INJECTION SITE PAIN [None]
  - BLINDNESS [None]
  - SCAR [None]
  - DYSPHAGIA [None]
  - VISUAL ACUITY REDUCED [None]
  - LYMPH GLAND INFECTION [None]
  - LACRIMATION INCREASED [None]
  - DRUG INEFFECTIVE [None]
  - ARTHRALGIA [None]
  - FIBROMYALGIA [None]
  - VISUAL IMPAIRMENT [None]
  - PAIN IN EXTREMITY [None]
  - NECK PAIN [None]
  - HEADACHE [None]
  - EYE PAIN [None]
